FAERS Safety Report 5143683-3 (Version None)
Quarter: 2006Q4

REPORT INFORMATION
  Report Type: 
  Country: None (occurrence: None)
  Receive Date: 20061103
  Receipt Date: 20061026
  Transmission Date: 20070319
  Serious: Yes (Death)
  Sender: FDA-Public Use
  Company Number: US-ABBOTT-06P-163-0348275-00

PATIENT
  Age: 85 Year
  Sex: Female
  Weight: 40.86 kg

DRUGS (3)
  1. HUMIRA [Suspect]
     Indication: RHEUMATOID ARTHRITIS
     Route: 058
  2. METHOTREXATE [Suspect]
     Indication: RHEUMATOID ARTHRITIS
  3. PREDNISONE TAB [Suspect]
     Indication: RHEUMATOID ARTHRITIS
     Route: 048

REACTIONS (5)
  - ABSCESS [None]
  - AORTIC DISORDER [None]
  - CARDIAC ARREST [None]
  - ENDOCARDITIS [None]
  - RESPIRATORY FAILURE [None]
